FAERS Safety Report 7941511-1 (Version None)
Quarter: 2011Q4

REPORT INFORMATION
  Report Type: 
  Country: None (occurrence: None)
  Receive Date: 20111122
  Receipt Date: 20111122
  Transmission Date: 20120403
  Serious: No
  Sender: FDA-Public Use
  Company Number: None

PATIENT
  Sex: Female
  Weight: 55.8 kg

DRUGS (2)
  1. TAXOL [Suspect]
     Dosage: 120 MG
     Dates: end: 20110912
  2. CARBOPLATIN [Suspect]
     Dosage: 600 MG
     Dates: end: 20110912

REACTIONS (3)
  - PLANTAR FASCIITIS [None]
  - MYALGIA [None]
  - ABASIA [None]
